FAERS Safety Report 8556610-3 (Version None)
Quarter: 2012Q3

REPORT INFORMATION
  Report Type: 
  Country: None (occurrence: None)
  Receive Date: 20120801
  Receipt Date: 20120711
  Transmission Date: 20120928
  Serious: No
  Sender: FDA-Public Use
  Company Number: US-ASTRAZENECA-2012SE48158

PATIENT
  Age: 39 Year
  Sex: Female
  Weight: 99.8 kg

DRUGS (4)
  1. SEROQUEL [Suspect]
     Route: 048
     Dates: start: 20120501
  2. SEROQUEL [Suspect]
     Indication: INSOMNIA
     Route: 048
     Dates: start: 20100101
  3. SEROQUEL [Suspect]
     Indication: DEPRESSION
     Route: 048
     Dates: start: 20100101
  4. SEROQUEL [Suspect]
     Route: 048
     Dates: start: 20120501

REACTIONS (2)
  - OFF LABEL USE [None]
  - OEDEMA PERIPHERAL [None]
